FAERS Safety Report 6583101-1 (Version None)
Quarter: 2010Q1

REPORT INFORMATION
  Report Type: 
  Country: None (occurrence: None)
  Receive Date: 20100216
  Receipt Date: 20100212
  Transmission Date: 20100710
  Serious: No
  Sender: FDA-Public Use
  Company Number: FI-MERCK-1002FIN00002

PATIENT
  Age: 11 Year
  Sex: Male

DRUGS (3)
  1. SINGULAIR [Suspect]
     Indication: ASTHMA
     Route: 048
     Dates: start: 20050501, end: 20091201
  2. SINGULAIR [Suspect]
     Indication: HYPERSENSITIVITY
     Route: 048
     Dates: start: 20050501, end: 20091201
  3. FLUTICASONE PROPIONATE [Concomitant]
     Indication: ASTHMA
     Route: 055
     Dates: start: 20070601

REACTIONS (4)
  - AGGRESSION [None]
  - ANXIETY [None]
  - COGNITIVE DISORDER [None]
  - OBSESSIVE-COMPULSIVE DISORDER [None]
